FAERS Safety Report 5073895-9 (Version None)
Quarter: 2006Q3

REPORT INFORMATION
  Report Type: 
  Country: None (occurrence: None)
  Receive Date: 20060803
  Receipt Date: 20060724
  Transmission Date: 20061208
  Serious: Yes (Other)
  Sender: FDA-Public Use
  Company Number: HQWYE364226JUL06

PATIENT
  Age: 45 Year
  Sex: Female

DRUGS (2)
  1. EFFEXOR [Suspect]
     Dosage: 300 MG 1X PER 1 DAY
  2. VICOPROFEN (HYDROCODONE/HYDROCODONE BITARTRATE/IBUPROFEN) [Concomitant]

REACTIONS (4)
  - CEREBROVASCULAR ACCIDENT [None]
  - CEREBROVASCULAR SPASM [None]
  - ISCHAEMIC CEREBRAL INFARCTION [None]
  - VASCULITIS CEREBRAL [None]
